FAERS Safety Report 8339542-5 (Version None)
Quarter: 2012Q2

REPORT INFORMATION
  Report Type: 
  Country: None (occurrence: None)
  Receive Date: 20120507
  Receipt Date: 20120430
  Transmission Date: 20120825
  Serious: Yes (Other)
  Sender: FDA-Public Use
  Company Number: PHEH2012US009315

PATIENT
  Sex: Female

DRUGS (1)
  1. AFINITOR [Suspect]
     Indication: MALIGNANT NEOPLASM OF ISLETS OF LANGERHANS
     Dosage: 10 MG, QD
     Route: 048

REACTIONS (5)
  - BLOOD GLUCOSE FLUCTUATION [None]
  - MEMORY IMPAIRMENT [None]
  - DRUG WITHDRAWAL SYNDROME [None]
  - FATIGUE [None]
  - IRRITABILITY [None]
